FAERS Safety Report 8849602 (Version 1)
Quarter: 2012Q4

REPORT INFORMATION
  Report Type: Report from Study
  Country: US (occurrence: US)
  Receive Date: 20121019
  Receipt Date: 20121019
  Transmission Date: 20130627
  Serious: No
  Sender: FDA-Public Use
  Company Number: US-VERTEX PHARMACEUTICAL INC.-2012-022723

PATIENT
  Sex: Female
  Weight: 92 kg

DRUGS (8)
  1. VX-950 [Suspect]
     Indication: HEPATITIS C
     Dosage: 750 mg, tid
     Route: 048
  2. PEGASYS [Suspect]
     Indication: HEPATITIS C
     Dosage: 180 ?g, weekly
     Route: 058
  3. RIBAPAK [Suspect]
     Indication: HEPATITIS C
     Dosage: 600 mg, bid
     Dates: start: 2012
  4. DILTIAZEM [Concomitant]
     Dosage: 120 mg, UNK
  5. ATENOLOL [Concomitant]
     Dosage: 25 mg, UNK
  6. ONE-A-DAY WOMEN TABLET [Concomitant]
  7. CALCIUM [Concomitant]
     Dosage: 600 mg, qd
  8. EDARBI [Concomitant]
     Dosage: 40 mg, qd

REACTIONS (1)
  - Haemoglobin decreased [Unknown]
